FAERS Safety Report 5446912-1 (Version None)
Quarter: 2007Q3

REPORT INFORMATION
  Report Type: 
  Country: None (occurrence: None)
  Receive Date: 20070907
  Receipt Date: 20070815
  Transmission Date: 20080115
  Serious: Yes (Other)
  Sender: FDA-Public Use
  Company Number: CZ-MERCK-0708CZE00004

PATIENT
  Sex: Male

DRUGS (13)
  1. CRIXIVAN [Suspect]
     Indication: HIV INFECTION
     Route: 048
  2. STOCRIN [Concomitant]
     Indication: HIV INFECTION
     Route: 048
  3. SAQUINAVIR [Concomitant]
     Indication: HIV INFECTION
     Route: 065
  4. RITONAVIR [Concomitant]
     Indication: HIV INFECTION
     Route: 065
  5. NELFINAVIR MESYLATE [Concomitant]
     Indication: HIV INFECTION
     Route: 065
  6. LOPINAVIR [Concomitant]
     Indication: HIV INFECTION
     Route: 065
  7. ZIDOVUDINE [Concomitant]
     Indication: HIV INFECTION
     Route: 065
  8. ZALCITABINE [Concomitant]
     Indication: HIV INFECTION
     Route: 065
  9. STAVUDINE [Concomitant]
     Indication: HIV INFECTION
     Route: 065
  10. LAMIVUDINE [Concomitant]
     Indication: HIV INFECTION
     Route: 065
  11. ABACAVIR SULFATE [Concomitant]
     Indication: HIV INFECTION
     Route: 065
  12. DIDANOSINE [Concomitant]
     Indication: HIV INFECTION
     Route: 065
  13. NEVIRAPINE [Concomitant]
     Indication: HIV INFECTION
     Route: 065

REACTIONS (1)
  - DRUG RESISTANCE [None]
